FAERS Safety Report 7216610-2 (Version None)
Quarter: 2011Q1

REPORT INFORMATION
  Report Type: 
  Country: None (occurrence: None)
  Receive Date: 20110110
  Receipt Date: 20100125
  Transmission Date: 20110831
  Serious: No
  Sender: FDA-Public Use
  Company Number: US-BIOGENIDEC-2010BI002757

PATIENT
  Sex: Female

DRUGS (1)
  1. TYSABRI [Suspect]
     Indication: MULTIPLE SCLEROSIS
     Route: 042
     Dates: start: 20100115

REACTIONS (16)
  - OPTIC NEURITIS [None]
  - SOMNOLENCE [None]
  - ABDOMINAL DISCOMFORT [None]
  - FOOT DEFORMITY [None]
  - ASTHENIA [None]
  - GASTROOESOPHAGEAL REFLUX DISEASE [None]
  - MUSCULOSKELETAL DISORDER [None]
  - ROTATOR CUFF SYNDROME [None]
  - MULTIPLE SCLEROSIS [None]
  - GAIT DISTURBANCE [None]
  - NAUSEA [None]
  - DECREASED APPETITE [None]
  - JOINT STIFFNESS [None]
  - SECONDARY PROGRESSIVE MULTIPLE SCLEROSIS [None]
  - CONSTIPATION [None]
  - FATIGUE [None]
